FAERS Safety Report 4296284-3 (Version None)
Quarter: 2004Q1

REPORT INFORMATION
  Report Type: 
  Country: None (occurrence: None)
  Receive Date: 20040217
  Receipt Date: 20031007
  Transmission Date: 20041129
  Serious: No
  Sender: FDA-Public Use
  Company Number: US-GLAXOSMITHKLINE-A0429256A

PATIENT
  Age: 48 Year
  Sex: Female

DRUGS (4)
  1. LAMICTAL [Suspect]
     Indication: BIPOLAR DISORDER
     Route: 048
     Dates: start: 20010601, end: 20020201
  2. WELLBUTRIN [Suspect]
     Indication: OBSESSIVE-COMPULSIVE DISORDER
     Route: 048
  3. ZOLOFT [Concomitant]
     Dosage: 25MG PER DAY
  4. ATIVAN [Concomitant]
     Dosage: 1MG PER DAY

REACTIONS (12)
  - ANOREXIA [None]
  - ANXIETY [None]
  - BLOOD PRESSURE DECREASED [None]
  - BRADYCARDIA [None]
  - FOOD INTOLERANCE [None]
  - HYPERTENSION [None]
  - IRRITABLE BOWEL SYNDROME [None]
  - LABILE BLOOD PRESSURE [None]
  - NERVOUSNESS [None]
  - RASH [None]
  - VERTIGO [None]
  - WEIGHT DECREASED [None]
